FAERS Safety Report 7564085-6 (Version None)
Quarter: 2011Q2

REPORT INFORMATION
  Report Type: 
  Country: None (occurrence: None)
  Receive Date: 20110622
  Receipt Date: 20110620
  Transmission Date: 20111010
  Serious: Yes (Hospitalization)
  Sender: FDA-Public Use
  Company Number: US-AMGEN-USASP2011030635

PATIENT
  Age: 47 Year
  Sex: Male

DRUGS (17)
  1. NPLATE [Suspect]
     Indication: IDIOPATHIC THROMBOCYTOPENIC PURPURA
     Dosage: 6 A?G/KG, UNK
     Route: 058
     Dates: start: 20110105, end: 20110609
  2. NEXIUM [Concomitant]
  3. MAGNESIUM OXIDE [Concomitant]
  4. FOLIC ACID [Concomitant]
  5. THIAMINE                           /00056102/ [Concomitant]
  6. BENADRYL [Concomitant]
  7. PREZISTA                           /05513801/ [Concomitant]
  8. EPLERENONE [Concomitant]
  9. PRAVACHOL [Concomitant]
  10. MULTIPLE VITAMINS [Concomitant]
  11. PREVACID [Concomitant]
  12. VITAMIN D [Concomitant]
  13. DESYREL [Concomitant]
  14. TRUVADA [Concomitant]
  15. ANDRODERM [Concomitant]
  16. NORVIR [Concomitant]
  17. FUROSEMIDE [Concomitant]

REACTIONS (9)
  - PETECHIAE [None]
  - ABDOMINAL DISTENSION [None]
  - HEPATITIS ALCOHOLIC [None]
  - OEDEMA PERIPHERAL [None]
  - EPISTAXIS [None]
  - GINGIVAL BLEEDING [None]
  - DEPRESSION [None]
  - WITHDRAWAL SYNDROME [None]
  - ROSACEA [None]
